FAERS Safety Report 7693164-8 (Version None)
Quarter: 2011Q3

REPORT INFORMATION
  Report Type: 
  Country: None (occurrence: None)
  Receive Date: 20110819
  Receipt Date: 20110811
  Transmission Date: 20111222
  Serious: Yes (Other)
  Sender: FDA-Public Use
  Company Number: FR-BRISTOL-MYERS SQUIBB COMPANY-15982168

PATIENT
  Age: 64 Year
  Sex: Male

DRUGS (3)
  1. CISPLATIN [Suspect]
     Indication: OESOPHAGEAL CARCINOMA
     Dates: start: 20071008, end: 20071105
  2. FLUOROURACIL [Suspect]
     Indication: OESOPHAGEAL CARCINOMA
     Dates: start: 20071008, end: 20071011
  3. CETUXIMAB [Suspect]
     Indication: OESOPHAGEAL CARCINOMA
     Dates: start: 20071001, end: 20071029

REACTIONS (6)
  - RASH [None]
  - BALANCE DISORDER [None]
  - DYSPHAGIA [None]
  - FATIGUE [None]
  - ABDOMINAL PAIN UPPER [None]
  - DECREASED APPETITE [None]
